FAERS Safety Report 10361716 (Version 3)
Quarter: 2014Q4

REPORT INFORMATION
  Report Type: Report from Study
  Country: IT (occurrence: IT)
  Receive Date: 20140805
  Receipt Date: 20141121
  Transmission Date: 20150528
  Serious: Yes (Other)
  Sender: FDA-Public Use
  Company Number: IT-ALEXION PHARMACEUTICALS INC.-A201400368

PATIENT

DRUGS (3)
  1. SOLIRIS [Suspect]
     Active Substance: ECULIZUMAB
     Dosage: 1200 MG, Q2W
     Route: 042
     Dates: start: 201403
  2. SOLIRIS [Suspect]
     Active Substance: ECULIZUMAB
     Indication: HAEMOLYTIC URAEMIC SYNDROME
     Dosage: 900 MG, QW
     Route: 042
     Dates: start: 20131213, end: 20131227
  3. SOLIRIS [Suspect]
     Active Substance: ECULIZUMAB
     Dosage: 1200 MG, QW
     Route: 042
     Dates: start: 20140110, end: 201402

REACTIONS (8)
  - Staphylococcal infection [Unknown]
  - Pulmonary hypertension [Unknown]
  - Urethral haemorrhage [Recovered/Resolved]
  - Thrombocytopenia [Recovering/Resolving]
  - Retinopathy hypertensive [Unknown]
  - Catheter site infection [Unknown]
  - Incorrect dose administered [Recovered/Resolved]
  - Aortic valve incompetence [Unknown]

NARRATIVE: CASE EVENT DATE: 20131224
